FAERS Safety Report 17069526 (Version 1)
Quarter: 2019Q4

REPORT INFORMATION
  Report Type: Spontaneous
  Country: US (occurrence: US)
  Receive Date: 20191125
  Receipt Date: 20191125
  Transmission Date: 20200122
  Serious: Yes (Other)
  Sender: FDA-Public Use
  Company Number: US-LUPIN PHARMACEUTICALS INC.-2019-07540

PATIENT
  Age: 60 Year
  Sex: Female
  Weight: 58.05 kg

DRUGS (1)
  1. LOSARTAN POTASSIUM TABLETS, 25 MG [Suspect]
     Active Substance: LOSARTAN POTASSIUM
     Indication: BLOOD PRESSURE ABNORMAL
     Dosage: 25 MILLIGRAM, QD
     Route: 048
     Dates: start: 201411

REACTIONS (6)
  - Tooth fracture [Not Recovered/Not Resolved]
  - Blood pressure systolic increased [Unknown]
  - Tooth infection [Not Recovered/Not Resolved]
  - Nasopharyngitis [Not Recovered/Not Resolved]
  - Oropharyngeal pain [Not Recovered/Not Resolved]
  - Tooth abscess [Not Recovered/Not Resolved]

NARRATIVE: CASE EVENT DATE: 20191108
